FAERS Safety Report 26200567 (Version 1)
Quarter: 2025Q4

REPORT INFORMATION
  Report Type: Spontaneous
  Country: EU (occurrence: None)
  Receive Date: 20251225
  Receipt Date: 20251225
  Transmission Date: 20260118
  Serious: Yes (Other)
  Sender: ORGANON
  Company Number: EU-ORGANON-O2512NOR001949

PATIENT
  Age: 27 Year
  Sex: Female

DRUGS (1)
  1. IMPLANON [Suspect]
     Active Substance: ETONOGESTREL
     Indication: Contraception
     Dosage: 1 IMPLANT, IN LEFT ARM

REACTIONS (8)
  - Gonorrhoea [Unknown]
  - Coital bleeding [Unknown]
  - Genital burning sensation [Unknown]
  - Menstruation irregular [Unknown]
  - Acne [Unknown]
  - Weight decreased [Unknown]
  - Alopecia [Unknown]
  - Headache [Unknown]

NARRATIVE: CASE EVENT DATE: 20250101
